FAERS Safety Report 5307609-1 (Version None)
Quarter: 2007Q2

REPORT INFORMATION
  Report Type: 
  Country: None (occurrence: None)
  Receive Date: 20070425
  Receipt Date: 20070413
  Transmission Date: 20071010
  Serious: Yes (Hospitalization)
  Sender: FDA-Public Use
  Company Number: FR-PFIZER INC-2007030162

PATIENT
  Age: 74 Year
  Sex: Male

DRUGS (2)
  1. ZOXAN LP [Suspect]
     Dosage: DAILY DOSE:8MG-TEXT:DAILY
     Route: 048
     Dates: start: 20070228, end: 20070303
  2. PLAVIX [Concomitant]

REACTIONS (7)
  - CEREBRAL ISCHAEMIA [None]
  - CONVULSION [None]
  - EPILEPSY [None]
  - LOSS OF CONSCIOUSNESS [None]
  - ORTHOSTATIC HYPOTENSION [None]
  - ROAD TRAFFIC ACCIDENT [None]
  - SYNCOPE [None]
